FAERS Safety Report 11596284 (Version 2)
Quarter: 2019Q1

REPORT INFORMATION
  Report Type: Spontaneous
  Country: FR (occurrence: FR)
  Receive Date: 20151006
  Receipt Date: 20190304
  Transmission Date: 20190417
  Serious: Yes (Hospitalization)
  Sender: FDA-Public Use
  Company Number: FR-PFIZER INC-2015328730

PATIENT
  Age: 82 Year
  Sex: Female
  Weight: 52.2 kg

DRUGS (6)
  1. TRIFLUCAN [Suspect]
     Active Substance: FLUCONAZOLE
     Dosage: UNK
     Route: 048
     Dates: start: 20150810, end: 20150817
  2. MYCOSTATINE [Suspect]
     Active Substance: NYSTATIN
     Dosage: UNK
     Route: 048
     Dates: start: 20150810, end: 20150819
  3. STRESAM [Suspect]
     Active Substance: ETIFOXINE
     Dosage: UNK
     Dates: end: 20150819
  4. SOLUPRED (PREDNISOLONE METASULFOBENZOATE SODIUM) [Suspect]
     Active Substance: PREDNISOLONE SODIUM METAZOATE
     Dosage: UNK
     Route: 048
     Dates: start: 20150810, end: 20150817
  5. FUNGIZONE [Suspect]
     Active Substance: AMPHOTERICIN B
     Indication: ORAL DISCOMFORT
     Dosage: UNK (10 PERCENT)
     Route: 048
     Dates: start: 20150720, end: 20150810
  6. TRIATEC [Concomitant]
     Dosage: UNK

REACTIONS (5)
  - Rash [Recovered/Resolved with Sequelae]
  - Cholestasis [Recovered/Resolved]
  - Pyrexia [Recovered/Resolved]
  - Hepatocellular injury [Recovered/Resolved]
  - Lymphadenopathy [Recovered/Resolved]

NARRATIVE: CASE EVENT DATE: 20150819
